FAERS Safety Report 8556601-2 (Version None)
Quarter: 2012Q3

REPORT INFORMATION
  Report Type: 
  Country: None (occurrence: None)
  Receive Date: 20120801
  Receipt Date: 20120723
  Transmission Date: 20120928
  Serious: Yes (Hospitalization)
  Sender: FDA-Public Use
  Company Number: CA-BRISTOL-MYERS SQUIBB COMPANY-16793580

PATIENT
  Age: 54 Year
  Sex: Female
  Weight: 98 kg

DRUGS (9)
  1. PACLITAXEL [Suspect]
     Indication: OVARIAN CANCER
     Route: 042
     Dates: start: 20110826
  2. HYDROCORTISONE [Concomitant]
     Indication: RASH
     Route: 061
     Dates: start: 20110928
  3. VENTOLIN [Concomitant]
     Indication: DYSPNOEA
     Dosage: 1DF:2-3 PUFFS
     Route: 048
     Dates: start: 20110826
  4. DEXAMETHASONE [Concomitant]
     Indication: ANTIEMETIC SUPPORTIVE CARE
     Route: 048
     Dates: start: 20110827
  5. RANITIDINE [Concomitant]
     Indication: PROPHYLAXIS OF NAUSEA AND VOMITING
     Route: 042
     Dates: start: 20110826
  6. DIPHENHYDRAMINE HCL [Concomitant]
     Indication: CHEMOTHERAPY CYTOKINE PROPHYLAXIS
     Route: 065
     Dates: start: 20110826
  7. GRANISETRON [Concomitant]
     Indication: ANTIEMETIC SUPPORTIVE CARE
     Route: 048
     Dates: start: 20110827
  8. NAPROXEN (ALEVE) [Concomitant]
     Indication: PAIN
     Dosage: 1DF:1 TABLET
     Route: 048
  9. ACETAMINOPHEN [Concomitant]
     Indication: PREMEDICATION
     Route: 048
     Dates: start: 20110826

REACTIONS (1)
  - PALMAR-PLANTAR ERYTHRODYSAESTHESIA SYNDROME [None]
